FAERS Safety Report 7669988-X (Version None)
Quarter: 2011Q3

REPORT INFORMATION
  Report Type: 
  Country: None (occurrence: None)
  Receive Date: 20110808
  Receipt Date: 20110725
  Transmission Date: 20111222
  Serious: No
  Sender: FDA-Public Use
  Company Number: US-B.I. PHARMACEUTICALS,INC./RIDGEFIELD-2011-BP-12395BP

PATIENT
  Age: 71 Year
  Sex: Male
  Weight: 102.51 kg

DRUGS (7)
  1. VENTOLIN HFA [Concomitant]
  2. HYDROCODONE [Concomitant]
  3. ACETAMINOPHEN [Concomitant]
  4. PRADAXA [Suspect]
     Indication: ATRIAL FIBRILLATION
     Route: 048
     Dates: start: 20110301
  5. LIPITOR [Concomitant]
  6. INDOLIN [Concomitant]
  7. CELEBREX [Concomitant]

REACTIONS (3)
  - COGNITIVE DISORDER [None]
  - GASTROOESOPHAGEAL REFLUX DISEASE [None]
  - NAUSEA [None]
